FAERS Safety Report 4610652-9 (Version None)
Quarter: 2005Q1

REPORT INFORMATION
  Report Type: 
  Country: None (occurrence: None)
  Receive Date: 20050228
  Receipt Date: 20040713
  Transmission Date: 20050727
  Serious: Yes (Death)
  Sender: FDA-Public Use
  Company Number: 374438

PATIENT
  Age: 64 Year
  Sex: Female

DRUGS (1)
  1. KYTRIL [Suspect]
     Indication: PROPHYLAXIS OF NAUSEA AND VOMITING
     Dosage: INTRAVENOUS
     Route: 042
     Dates: end: 20040526

REACTIONS (1)
  - LUNG NEOPLASM MALIGNANT [None]
